FAERS Safety Report 17403010 (Version 1)
Quarter: 2020Q1

REPORT INFORMATION
  Report Type: Spontaneous
  Country: IT (occurrence: IT)
  Receive Date: 20200211
  Receipt Date: 20200211
  Transmission Date: 20200409
  Serious: Yes (Hospitalization, Other)
  Sender: FDA-Public Use
  Company Number: IT-SA-2020SA032060

PATIENT
  Age: 84 Year
  Sex: Male

DRUGS (5)
  1. LANOXIN [Concomitant]
     Active Substance: DIGOXIN
     Dosage: UNK
  2. CARNITENE [CARNITINE HYDROCHLORIDE] [Concomitant]
     Dosage: UNK
  3. CLEXANE [Suspect]
     Active Substance: ENOXAPARIN SODIUM
     Indication: THROMBOSIS PROPHYLAXIS
     Dosage: 1 DF, QD
     Route: 058
     Dates: start: 20191213
  4. DICLOFENAC SODIUM. [Suspect]
     Active Substance: DICLOFENAC SODIUM
     Indication: BONE PAIN
     Dosage: 150 MG, QD
     Route: 030
     Dates: start: 20200113, end: 20200123
  5. CONGESCOR [Concomitant]
     Active Substance: BISOPROLOL
     Dosage: UNK

REACTIONS (3)
  - Melaena [Recovering/Resolving]
  - Duodenal ulcer [Recovering/Resolving]
  - Substance abuse [Unknown]

NARRATIVE: CASE EVENT DATE: 20200123
